FAERS Safety Report 17165035 (Version 2)
Quarter: 2019Q4

REPORT INFORMATION
  Report Type: Spontaneous
  Country: JP (occurrence: JP)
  Receive Date: 20191217
  Receipt Date: 20191219
  Transmission Date: 20200122
  Serious: Yes (Death, Hospitalization, Other)
  Sender: FDA-Public Use
  Company Number: JP-009507513-1910JPN004121J

PATIENT
  Age: 69 Year
  Sex: Male

DRUGS (5)
  1. KEYTRUDA [Suspect]
     Active Substance: PEMBROLIZUMAB
     Indication: NON-SMALL CELL LUNG CANCER
     Dosage: 200 MILLIGRAM, Q3W
     Route: 041
     Dates: start: 20190904, end: 20190904
  2. PACLITAXEL ALBUMIN [Concomitant]
     Active Substance: PACLITAXEL
     Dosage: 100 MILLIGRAM, ONCE
     Route: 041
     Dates: start: 20190904, end: 20190904
  3. CARBOPLATIN. [Concomitant]
     Active Substance: CARBOPLATIN
     Dosage: UNK UNK, Q3W
     Route: 041
     Dates: start: 20190904, end: 20190904
  4. PACLITAXEL ALBUMIN [Concomitant]
     Active Substance: PACLITAXEL
     Dosage: 100 UNK
     Route: 041
     Dates: start: 20190925, end: 20190925
  5. PACLITAXEL ALBUMIN [Concomitant]
     Active Substance: PACLITAXEL
     Dosage: 100 MILLIGRAM, ONCE
     Route: 041
     Dates: start: 20190918, end: 20190918

REACTIONS (5)
  - Pneumonia [Fatal]
  - Decreased appetite [Recovered/Resolved]
  - Cytomegalovirus test positive [Unknown]
  - Hyponatraemia [Recovered/Resolved]
  - Fungal test positive [Unknown]

NARRATIVE: CASE EVENT DATE: 20190910
